FAERS Safety Report 20215009 (Version 3)
Quarter: 2022Q1

REPORT INFORMATION
  Report Type: Spontaneous
  Country: FR (occurrence: FR)
  Receive Date: 20211222
  Receipt Date: 20220111
  Transmission Date: 20220423
  Serious: Yes (Other)
  Sender: FDA-Public Use
  Company Number: FR-GRUNENTHAL-2021-272447

PATIENT
  Age: 8 Year
  Sex: Male

DRUGS (2)
  1. TRAMADOL [Suspect]
     Active Substance: TRAMADOL
     Indication: Product used for unknown indication
     Dosage: UNK
     Route: 048
  2. TRAMADOL [Suspect]
     Active Substance: TRAMADOL
     Dosage: 152 DROP
     Route: 048

REACTIONS (4)
  - Respiratory distress [Unknown]
  - Overdose [Unknown]
  - Prescription drug used without a prescription [Unknown]
  - Drug monitoring procedure not performed [Unknown]
